FAERS Safety Report 10953424 (Version 1)
Quarter: 2015Q1

REPORT INFORMATION
  Report Type: Spontaneous
  Country: US (occurrence: US)
  Receive Date: 20150325
  Receipt Date: 20150325
  Transmission Date: 20150721
  Serious: Yes (Other)
  Sender: FDA-Public Use
  Company Number: US-JNJFOC-20150315902

PATIENT
  Sex: Female

DRUGS (3)
  1. XARELTO [Suspect]
     Active Substance: RIVAROXABAN
     Indication: CEREBROVASCULAR ACCIDENT PROPHYLAXIS
     Route: 048
  2. XARELTO [Suspect]
     Active Substance: RIVAROXABAN
     Indication: ATRIAL FIBRILLATION
     Route: 048
  3. XARELTO [Suspect]
     Active Substance: RIVAROXABAN
     Indication: MITRAL VALVE INCOMPETENCE
     Route: 048

REACTIONS (8)
  - Pruritus [Unknown]
  - Hyperhidrosis [Unknown]
  - Meniscus injury [Unknown]
  - Dyspnoea [Unknown]
  - Fall [Unknown]
  - Hand fracture [Unknown]
  - Acne [Unknown]
  - Dizziness [Unknown]
